FAERS Safety Report 4440885-6 (Version None)
Quarter: 2004Q3

REPORT INFORMATION
  Report Type: 
  Country: None (occurrence: None)
  Receive Date: 20040728
  Receipt Date: 20040203
  Transmission Date: 20050211
  Serious: No
  Sender: FDA-Public Use
  Company Number: USA040155933

PATIENT
  Age: 8 Year
  Sex: Male
  Weight: 30 kg

DRUGS (1)
  1. STRATTERA [Suspect]
     Indication: ATTENTION DEFICIT/HYPERACTIVITY DISORDER
     Dosage: 40 MG/IN THE EVENING
     Dates: start: 20031201

REACTIONS (5)
  - ABNORMAL BEHAVIOUR [None]
  - MILK ALLERGY [None]
  - PHARYNGITIS STREPTOCOCCAL [None]
  - SCARLET FEVER [None]
  - URTICARIA [None]
